FAERS Safety Report 24714687 (Version 2)
Quarter: 2025Q4

REPORT INFORMATION
  Report Type: Report from Study
  Country: US (occurrence: US)
  Receive Date: 20241209
  Receipt Date: 20251219
  Transmission Date: 20260118
  Serious: Yes (Other)
  Sender: GLAXOSMITHKLINE
  Company Number: US-GLAXOSMITHKLINE INC-US2024151400

PATIENT
  Sex: Female

DRUGS (2)
  1. MEPOLIZUMAB [Suspect]
     Active Substance: MEPOLIZUMAB
     Indication: Asthma
     Dosage: 100 MG, Q4W
  2. VARICELLA-ZOSTER VACCINE NOS [Suspect]
     Active Substance: VARICELLA-ZOSTER VACCINE
     Indication: Prophylaxis

REACTIONS (9)
  - Hypothyroidism [Unknown]
  - Vaccination failure [Unknown]
  - Glaucoma [Not Recovered/Not Resolved]
  - Weight decreased [Unknown]
  - Herpes zoster [Unknown]
  - Asthma [Unknown]
  - Infection [Unknown]
  - Wrong product administered [Unknown]
  - Product dose omission issue [Unknown]
